FAERS Safety Report 4386171-4 (Version None)
Quarter: 2004Q2

REPORT INFORMATION
  Report Type: 
  Country: None (occurrence: None)
  Receive Date: 20040622
  Receipt Date: 20040609
  Transmission Date: 20050107
  Serious: Yes (Other)
  Sender: FDA-Public Use
  Company Number: 2004039160

PATIENT
  Sex: Female

DRUGS (2)
  1. FELDENE [Suspect]
     Indication: ILL-DEFINED DISORDER
     Dosage: 20 NG (20 MG, DAILY), ORAL
     Route: 048
     Dates: start: 20021111, end: 20021101
  2. ATENOLOL [Concomitant]

REACTIONS (6)
  - ABDOMINAL PAIN [None]
  - BLOOD CREATINE INCREASED [None]
  - BLOOD PRESSURE INCREASED [None]
  - RENAL DISORDER [None]
  - RENAL PAIN [None]
  - VERTIGO [None]
